FAERS Safety Report 9845294 (Version 1)
Quarter: 2014Q1

REPORT INFORMATION
  Report Type: Spontaneous
  Country: US (occurrence: US)
  Receive Date: 20140127
  Receipt Date: 20140127
  Transmission Date: 20141002
  Serious: No
  Sender: FDA-Public Use
  Company Number: US-BAUSCH-BL-2013-004991

PATIENT
  Age: 47 Year
  Sex: Female

DRUGS (2)
  1. ZYLET (LOTEPREDNOL ETABONATE 0.5% AND TOBRAMYCIN 0.3% OPHTHALMIC SUSPE [Suspect]
     Indication: EYE ALLERGY
     Dosage: ONE DROP INTO RIGHT EYE 3-4 TIMES TOTAL
     Route: 047
     Dates: start: 20130904, end: 20130906
  2. ZYLET (LOTEPREDNOL ETABONATE 0.5% AND TOBRAMYCIN 0.3% OPHTHALMIC SUSPE [Suspect]
     Dosage: ONE DROP INTO LEFT EYE 3-4 TIMES TOTAL
     Route: 047
     Dates: start: 20130904, end: 20130906

REACTIONS (1)
  - Hypersensitivity [Recovered/Resolved]
